FAERS Safety Report 9875691 (Version 1)
Quarter: 2014Q1

REPORT INFORMATION
  Report Type: Spontaneous
  Country: US (occurrence: None)
  Receive Date: 20140205
  Receipt Date: 20140205
  Transmission Date: 20141002
  Serious: Yes (Hospitalization)
  Sender: FDA-Public Use
  Company Number: None

PATIENT
  Age: 69 Year
  Sex: Female
  Weight: 60 kg

DRUGS (2)
  1. CARBOPLATIN [Suspect]
     Dates: end: 20140127
  2. PACLITAXEL (TAXOL) [Suspect]
     Dates: end: 20140127

REACTIONS (4)
  - Nausea [None]
  - Abdominal pain [None]
  - Drug ineffective [None]
  - Cancer pain [None]
